FAERS Safety Report 5407126-4 (Version None)
Quarter: 2007Q3

REPORT INFORMATION
  Report Type: 
  Country: None (occurrence: None)
  Receive Date: 20070803
  Receipt Date: 20070803
  Transmission Date: 20080115
  Serious: No
  Sender: FDA-Public Use
  Company Number: None

PATIENT
  Age: 75 Year
  Sex: Male

DRUGS (1)
  1. CALCITONIN-SALMON [Suspect]
     Indication: OSTEOPOROSIS
     Dosage: 200UNITS EVERY DAY NASAL
     Route: 045
     Dates: start: 20070507, end: 20070605

REACTIONS (2)
  - MYALGIA [None]
  - TEMPORAL ARTERITIS [None]
